FAERS Safety Report 7770465-6 (Version None)
Quarter: 2011Q3

REPORT INFORMATION
  Report Type: 
  Country: None (occurrence: None)
  Receive Date: 20110922
  Receipt Date: 20100902
  Transmission Date: 20111222
  Serious: Yes (Hospitalization)
  Sender: FDA-Public Use
  Company Number: US-ASTRAZENECA-2007UW18699

PATIENT
  Age: 15967 Day
  Sex: Male
  Weight: 99.8 kg

DRUGS (23)
  1. ZYPREXA [Concomitant]
     Indication: SCHIZOPHRENIA
     Dates: start: 19980217, end: 20030310
  2. BUSPAR [Concomitant]
  3. SEROQUEL [Suspect]
     Indication: DEPRESSION
     Dosage: 100 TO 800 MG
     Route: 048
     Dates: start: 20010101
  4. SEROQUEL [Suspect]
     Dosage: 25 MG - 900 MG
     Route: 048
     Dates: start: 20020319
  5. SEROQUEL [Suspect]
     Dosage: 25 MG - 900 MG
     Route: 048
     Dates: start: 20020319
  6. DEPAKOTE [Concomitant]
  7. PROZAC [Concomitant]
     Dates: start: 19980217
  8. LISINOPRIL [Concomitant]
  9. METFORMIN [Concomitant]
  10. LORAZEPAM [Concomitant]
  11. LOVASTATIN [Concomitant]
  12. REMERON [Concomitant]
  13. CYCLOPHOSPHAMIDE [Concomitant]
  14. SEROQUEL [Suspect]
     Indication: BIPOLAR DISORDER
     Dosage: 100 TO 800 MG
     Route: 048
     Dates: start: 20010101
  15. SEROQUEL [Suspect]
     Indication: SCHIZOPHRENIA
     Dosage: 100 TO 800 MG
     Route: 048
     Dates: start: 20010101
  16. ZYPREXA [Concomitant]
     Indication: DEPRESSION
     Dates: start: 19980217, end: 20030310
  17. CARISOPRODOL [Concomitant]
  18. VERAPAMIL [Concomitant]
  19. SEROQUEL [Suspect]
     Dosage: 25 MG - 900 MG
     Route: 048
     Dates: start: 20020319
  20. INSULIN [Concomitant]
  21. ROCEPHIN [Concomitant]
  22. ZOLOFT [Concomitant]
     Dates: start: 19980901
  23. ZYPREXA [Concomitant]
     Indication: BIPOLAR DISORDER
     Dates: start: 19980217, end: 20030310

REACTIONS (3)
  - DIABETES MELLITUS [None]
  - RESPIRATORY DISORDER [None]
  - TYPE 2 DIABETES MELLITUS [None]
